FAERS Safety Report 24735744 (Version 1)
Quarter: 2024Q4

REPORT INFORMATION
  Report Type: Other
  Country: CA (occurrence: CA)
  Receive Date: 20241216
  Receipt Date: 20241216
  Transmission Date: 20250115
  Serious: Yes (Death, Other)
  Sender: APOTEX
  Company Number: CA-APOTEX-2024AP019588

PATIENT
  Age: 75 Year
  Sex: Female

DRUGS (1)
  1. LENALIDOMIDE [Suspect]
     Active Substance: LENALIDOMIDE
     Indication: Plasma cell myeloma
     Dosage: 5 MILLIGRAM, CYCLICAL
     Route: 048

REACTIONS (1)
  - Death [Fatal]
